FAERS Safety Report 7436652-1 (Version None)
Quarter: 2011Q2

REPORT INFORMATION
  Report Type: 
  Country: None (occurrence: None)
  Receive Date: 20110426
  Receipt Date: 20110412
  Transmission Date: 20111010
  Serious: Yes (Death)
  Sender: FDA-Public Use
  Company Number: DE-CELGENEUS-062-21880-11030214

PATIENT
  Age: 75 Year
  Sex: Female
  Weight: 58 kg

DRUGS (1)
  1. REVLIMID [Suspect]
     Indication: PLASMACYTOMA
     Dosage: 15 MILLIGRAM
     Route: 048
     Dates: start: 20080501, end: 20110201

REACTIONS (3)
  - MULTI-ORGAN FAILURE [None]
  - SEPSIS [None]
  - NEUTROPENIA [None]
